FAERS Safety Report 19982681 (Version 2)
Quarter: 2022Q4

REPORT INFORMATION
  Report Type: Report from Study
  Country: JP (occurrence: JP)
  Receive Date: 20211021
  Receipt Date: 20221128
  Transmission Date: 20230112
  Serious: Yes (Death, Life-Threatening, Hospitalization, Other)
  Sender: FDA-Public Use
  Company Number: PHHY2013JP171562

PATIENT
  Age: 47 Year
  Sex: Male
  Weight: 67 kg

DRUGS (134)
  1. VOTRIENT [Suspect]
     Active Substance: PAZOPANIB HYDROCHLORIDE
     Indication: Liposarcoma
     Dosage: 800 MG, QD
     Route: 048
     Dates: start: 20130124, end: 20130211
  2. VOTRIENT [Suspect]
     Active Substance: PAZOPANIB HYDROCHLORIDE
     Dosage: 200 MG, QD
     Route: 048
     Dates: start: 20130211, end: 20130329
  3. ZYVOX [Suspect]
     Active Substance: LINEZOLID
     Indication: Product used for unknown indication
     Dosage: 1 DF,
     Route: 041
     Dates: start: 20130206, end: 20130208
  4. DECADRON [Concomitant]
     Active Substance: DEXAMETHASONE
     Indication: Cachexia
     Dosage: 0.5 MG, BID
     Route: 048
     Dates: start: 20130125, end: 20130129
  5. DECADRON [Concomitant]
     Active Substance: DEXAMETHASONE
     Dosage: 0.5 MG, BID
     Route: 048
     Dates: start: 20130205, end: 20130212
  6. DECADRON [Concomitant]
     Active Substance: DEXAMETHASONE
     Dosage: 0.5 MG, QD
     Route: 048
     Dates: start: 20130207, end: 20130208
  7. DECADRON [Concomitant]
     Active Substance: DEXAMETHASONE
     Dosage: 3.5 MG, QD
     Route: 048
     Dates: start: 20130208, end: 20130208
  8. DECADRON [Concomitant]
     Active Substance: DEXAMETHASONE
     Dosage: 8 MG, QD
     Route: 048
     Dates: start: 20130209, end: 20130223
  9. DECADRON [Concomitant]
     Active Substance: DEXAMETHASONE
     Dosage: 8 MG, QD
     Route: 048
     Dates: start: 20130226, end: 20130228
  10. DECADRON [Concomitant]
     Active Substance: DEXAMETHASONE
     Dosage: 16 MG, QD
     Route: 048
     Dates: start: 20130301, end: 20130301
  11. DECADRON [Concomitant]
     Active Substance: DEXAMETHASONE
     Dosage: 8 MG, QD
     Route: 048
     Dates: start: 20130302, end: 20130303
  12. DECADRON [Concomitant]
     Active Substance: DEXAMETHASONE
     Dosage: 16 MG, QD
     Route: 048
     Dates: start: 20130304, end: 20130304
  13. DECADRON [Concomitant]
     Active Substance: DEXAMETHASONE
     Dosage: 8 MG, QD
     Route: 048
     Dates: start: 20130305, end: 20130313
  14. DECADRON [Concomitant]
     Active Substance: DEXAMETHASONE
     Dosage: BID
     Route: 048
     Dates: start: 20130314, end: 20130314
  15. DECADRON [Concomitant]
     Active Substance: DEXAMETHASONE
     Dosage: 6 MG, QD
     Route: 048
     Dates: start: 20130315, end: 20130317
  16. DECADRON [Concomitant]
     Active Substance: DEXAMETHASONE
     Dosage: 4 MG, QD
     Route: 048
     Dates: start: 20130318, end: 20130318
  17. DECADRON [Concomitant]
     Active Substance: DEXAMETHASONE
     Dosage: 8 MG, QD
     Route: 048
     Dates: start: 20130319, end: 20130321
  18. DECADRON [Concomitant]
     Active Substance: DEXAMETHASONE
     Dosage: 4 MG, QD
     Route: 048
     Dates: start: 20130322, end: 20130322
  19. DECADRON [Concomitant]
     Active Substance: DEXAMETHASONE
     Dosage: 4 MG, QD
     Route: 048
     Dates: start: 20130325, end: 20130327
  20. DECADRON [Concomitant]
     Active Substance: DEXAMETHASONE
     Dosage: 8 MG, QD
     Route: 048
     Dates: start: 20130328, end: 20130328
  21. DECADRON [Concomitant]
     Active Substance: DEXAMETHASONE
     Dosage: 4 MG, QD
     Route: 048
     Dates: start: 20130329, end: 20130403
  22. DECADRON [Concomitant]
     Active Substance: DEXAMETHASONE
     Dosage: 8 MG, QD
     Route: 048
     Dates: start: 20130404, end: 20130406
  23. DECADRON [Concomitant]
     Active Substance: DEXAMETHASONE
     Dosage: 4 MG, QD
     Route: 048
     Dates: start: 20130407, end: 20130410
  24. OXYCONTIN [Concomitant]
     Active Substance: OXYCODONE HYDROCHLORIDE
     Indication: Neuralgia
     Dosage: 40 MG, BID
     Route: 048
     Dates: start: 20130125, end: 20130128
  25. OXYCONTIN [Concomitant]
     Active Substance: OXYCODONE HYDROCHLORIDE
     Indication: Neuralgia
     Dosage: 30 MG, BID
     Route: 048
     Dates: start: 20130205, end: 20130212
  26. OXYCONTIN [Concomitant]
     Active Substance: OXYCODONE HYDROCHLORIDE
     Indication: Neuralgia
     Dosage: 40 MG, BID
     Route: 048
     Dates: start: 20130205, end: 20130223
  27. OXYCONTIN [Concomitant]
     Active Substance: OXYCODONE HYDROCHLORIDE
     Indication: Neuralgia
     Dosage: 40 MG, BID
     Route: 048
     Dates: start: 20130226, end: 20130228
  28. OXYCONTIN [Concomitant]
     Active Substance: OXYCODONE HYDROCHLORIDE
     Indication: Neuralgia
     Dosage: 80 MG, BID
     Route: 048
     Dates: start: 20130301, end: 20130301
  29. OXYCONTIN [Concomitant]
     Active Substance: OXYCODONE HYDROCHLORIDE
     Indication: Neuralgia
     Dosage: 40 MG, BID
     Route: 048
     Dates: start: 20130302, end: 20130303
  30. OXYCONTIN [Concomitant]
     Active Substance: OXYCODONE HYDROCHLORIDE
     Indication: Neuralgia
     Dosage: 80 MG, BID
     Route: 048
     Dates: start: 20130304, end: 20130304
  31. OXYCONTIN [Concomitant]
     Active Substance: OXYCODONE HYDROCHLORIDE
     Indication: Neuralgia
     Dosage: 40 MG, BID
     Route: 048
     Dates: start: 20130305, end: 20130313
  32. OXYCONTIN [Concomitant]
     Active Substance: OXYCODONE HYDROCHLORIDE
     Indication: Neuralgia
     Dosage: 70 MG, BID
     Route: 048
     Dates: start: 20130314, end: 20130314
  33. OXYCONTIN [Concomitant]
     Active Substance: OXYCODONE HYDROCHLORIDE
     Indication: Neuralgia
     Dosage: 30 MG, BID
     Route: 048
     Dates: start: 20130315, end: 20130317
  34. OXYCONTIN [Concomitant]
     Active Substance: OXYCODONE HYDROCHLORIDE
     Indication: Neuralgia
     Dosage: 40 MG, BID
     Route: 048
     Dates: start: 20130318, end: 20130318
  35. OXYCONTIN [Concomitant]
     Active Substance: OXYCODONE HYDROCHLORIDE
     Indication: Neuralgia
     Dosage: 80 MG, BID
     Route: 048
     Dates: start: 20130319, end: 20130320
  36. OXYCONTIN [Concomitant]
     Active Substance: OXYCODONE HYDROCHLORIDE
     Indication: Neuralgia
     Dosage: 90 MG, BID
     Route: 048
     Dates: start: 20130321, end: 20130321
  37. OXYCONTIN [Concomitant]
     Active Substance: OXYCODONE HYDROCHLORIDE
     Indication: Neuralgia
     Dosage: 100 MG, BID
     Route: 048
     Dates: start: 20130322, end: 20130322
  38. OXYCONTIN [Concomitant]
     Active Substance: OXYCODONE HYDROCHLORIDE
     Indication: Neuralgia
     Dosage: 50 MG, BID
     Route: 048
     Dates: start: 20130323, end: 20130324
  39. OXYCONTIN [Concomitant]
     Active Substance: OXYCODONE HYDROCHLORIDE
     Indication: Neuralgia
     Dosage: 100 MG, BID
     Route: 048
     Dates: start: 20130325, end: 20130325
  40. OXYCONTIN [Concomitant]
     Active Substance: OXYCODONE HYDROCHLORIDE
     Indication: Neuralgia
     Dosage: 90 MG, BID
     Route: 048
     Dates: start: 20130326, end: 20130327
  41. OXYCONTIN [Concomitant]
     Active Substance: OXYCODONE HYDROCHLORIDE
     Indication: Neuralgia
     Dosage: 140 MG, BID
     Route: 048
     Dates: start: 20130328, end: 20130328
  42. OXYCONTIN [Concomitant]
     Active Substance: OXYCODONE HYDROCHLORIDE
     Indication: Neuralgia
     Dosage: 90 MG, BID
     Route: 048
     Dates: start: 20130329, end: 20130330
  43. OXYCONTIN [Concomitant]
     Active Substance: OXYCODONE HYDROCHLORIDE
     Indication: Neuralgia
     Dosage: 90 MG, BID
     Route: 048
     Dates: start: 20130331, end: 20130331
  44. OXYCONTIN [Concomitant]
     Active Substance: OXYCODONE HYDROCHLORIDE
     Indication: Neuralgia
     Dosage: 50 MG, BID
     Route: 048
     Dates: start: 20130401, end: 20130402
  45. OXYCONTIN [Concomitant]
     Active Substance: OXYCODONE HYDROCHLORIDE
     Indication: Neuralgia
     Dosage: BID
     Route: 048
     Dates: start: 20130403, end: 20130403
  46. OXYCONTIN [Concomitant]
     Active Substance: OXYCODONE HYDROCHLORIDE
     Indication: Neuralgia
     Dosage: BID
     Route: 048
     Dates: start: 20130404, end: 20130406
  47. OXYCONTIN [Concomitant]
     Active Substance: OXYCODONE HYDROCHLORIDE
     Indication: Neuralgia
     Dosage: BID
     Route: 048
     Dates: start: 20130407, end: 20130410
  48. LYRICA [Concomitant]
     Active Substance: PREGABALIN
     Indication: Neuralgia
     Dosage: 150 MG, BID
     Route: 048
     Dates: start: 20130125, end: 20130129
  49. LYRICA [Concomitant]
     Active Substance: PREGABALIN
     Indication: Neuralgia
     Dosage: 150 MG, BID
     Route: 048
     Dates: start: 20130205, end: 20130212
  50. LYRICA [Concomitant]
     Active Substance: PREGABALIN
     Indication: Neuralgia
     Dosage: 25 MG, QD
     Route: 048
     Dates: start: 20130205, end: 20130223
  51. LYRICA [Concomitant]
     Active Substance: PREGABALIN
     Indication: Neuralgia
     Dosage: 25 MG, QD
     Route: 048
     Dates: start: 20130226, end: 20130228
  52. LYRICA [Concomitant]
     Active Substance: PREGABALIN
     Indication: Neuralgia
     Dosage: 50 MG, QD
     Route: 048
     Dates: start: 20130301, end: 20130301
  53. LYRICA [Concomitant]
     Active Substance: PREGABALIN
     Indication: Neuralgia
     Dosage: 25 MG, QD
     Route: 048
     Dates: start: 20130302, end: 20130303
  54. LYRICA [Concomitant]
     Active Substance: PREGABALIN
     Indication: Neuralgia
     Dosage: 50 MG, QD
     Route: 048
     Dates: start: 20130304, end: 20130304
  55. LYRICA [Concomitant]
     Active Substance: PREGABALIN
     Indication: Neuralgia
     Dosage: 25 MG, QD
     Route: 048
     Dates: start: 20130305, end: 20130314
  56. LYRICA [Concomitant]
     Active Substance: PREGABALIN
     Indication: Neuralgia
     Dosage: 25 MG, BID
     Route: 048
     Dates: start: 20130318, end: 20130318
  57. LYRICA [Concomitant]
     Active Substance: PREGABALIN
     Indication: Neuralgia
     Dosage: 50 MG, BID
     Route: 048
     Dates: start: 20130319, end: 20130321
  58. LYRICA [Concomitant]
     Active Substance: PREGABALIN
     Indication: Neuralgia
     Dosage: 25 MG, BID
     Route: 048
     Dates: start: 20130322, end: 20130322
  59. LYRICA [Concomitant]
     Active Substance: PREGABALIN
     Indication: Neuralgia
     Dosage: 25 MG, BID
     Route: 048
     Dates: start: 20130325, end: 20130327
  60. LYRICA [Concomitant]
     Active Substance: PREGABALIN
     Indication: Neuralgia
     Dosage: 50 MG, BID
     Route: 048
     Dates: start: 20130328, end: 20130328
  61. LYRICA [Concomitant]
     Active Substance: PREGABALIN
     Indication: Neuralgia
     Dosage: 25 MG, BID
     Route: 048
     Dates: start: 20130329, end: 20130403
  62. LYRICA [Concomitant]
     Active Substance: PREGABALIN
     Indication: Neuralgia
     Dosage: 50 MG, BID
     Route: 048
     Dates: start: 20130404, end: 20130406
  63. LYRICA [Concomitant]
     Active Substance: PREGABALIN
     Indication: Neuralgia
     Dosage: 25 MG, BID
     Route: 048
     Dates: start: 20130407, end: 20130410
  64. LEVOTHYROXINE SODIUM [Concomitant]
     Active Substance: LEVOTHYROXINE SODIUM
     Indication: Product used for unknown indication
     Dosage: 25 UG, QD
     Route: 048
     Dates: start: 20130307, end: 20130313
  65. LEVOTHYROXINE SODIUM [Concomitant]
     Active Substance: LEVOTHYROXINE SODIUM
     Dosage: 50 UG, QD
     Route: 048
     Dates: start: 20130314, end: 20130314
  66. LEVOTHYROXINE SODIUM [Concomitant]
     Active Substance: LEVOTHYROXINE SODIUM
     Dosage: 25 UG, QD
     Route: 048
     Dates: start: 20130315, end: 20130318
  67. LEVOTHYROXINE SODIUM [Concomitant]
     Active Substance: LEVOTHYROXINE SODIUM
     Dosage: 50 UG, QD
     Route: 048
     Dates: start: 20130319, end: 20130321
  68. LEVOTHYROXINE SODIUM [Concomitant]
     Active Substance: LEVOTHYROXINE SODIUM
     Dosage: 25 UG, QD
     Route: 048
     Dates: start: 20130322, end: 20130322
  69. LEVOTHYROXINE SODIUM [Concomitant]
     Active Substance: LEVOTHYROXINE SODIUM
     Dosage: 25 UG, QD
     Route: 048
     Dates: start: 20130325, end: 20130327
  70. LEVOTHYROXINE SODIUM [Concomitant]
     Active Substance: LEVOTHYROXINE SODIUM
     Dosage: 50 UG, QD
     Route: 048
     Dates: start: 20130328, end: 20130328
  71. LEVOTHYROXINE SODIUM [Concomitant]
     Active Substance: LEVOTHYROXINE SODIUM
     Dosage: 25 UG, QD
     Route: 048
     Dates: start: 20130329, end: 20130403
  72. LEVOTHYROXINE SODIUM [Concomitant]
     Active Substance: LEVOTHYROXINE SODIUM
     Dosage: 75 UG, QD
     Route: 048
     Dates: start: 20130404, end: 20130406
  73. LEVOTHYROXINE SODIUM [Concomitant]
     Active Substance: LEVOTHYROXINE SODIUM
     Dosage: 50 UG, QD
     Route: 048
     Dates: start: 20130407, end: 20130410
  74. AMLODIPINE BESYLATE [Concomitant]
     Active Substance: AMLODIPINE BESYLATE
     Indication: Product used for unknown indication
     Dosage: 5 MG, QD
     Route: 048
     Dates: start: 20130215, end: 20130223
  75. AMLODIPINE BESYLATE [Concomitant]
     Active Substance: AMLODIPINE BESYLATE
     Dosage: 5 MG, QD
     Route: 048
     Dates: start: 20130226, end: 20130301
  76. AMLODIPINE BESYLATE [Concomitant]
     Active Substance: AMLODIPINE BESYLATE
     Dosage: 5 MG, QD
     Route: 048
     Dates: start: 20130311, end: 20130313
  77. AMLODIPINE BESYLATE [Concomitant]
     Active Substance: AMLODIPINE BESYLATE
     Dosage: 10 MG, QD
     Route: 048
     Dates: start: 20130314, end: 20130314
  78. AMLODIPINE BESYLATE [Concomitant]
     Active Substance: AMLODIPINE BESYLATE
     Dosage: 5 MG, QD
     Route: 048
     Dates: start: 20130315, end: 20130318
  79. AMLODIPINE BESYLATE [Concomitant]
     Active Substance: AMLODIPINE BESYLATE
     Dosage: 10 MG, QD
     Route: 048
     Dates: start: 20130319, end: 20130321
  80. AMLODIPINE BESYLATE [Concomitant]
     Active Substance: AMLODIPINE BESYLATE
     Dosage: 5 MG, QD
     Route: 048
     Dates: start: 20130322, end: 20130322
  81. AMLODIPINE BESYLATE [Concomitant]
     Active Substance: AMLODIPINE BESYLATE
     Dosage: 5 MG, QD
     Route: 048
     Dates: start: 20130325, end: 20130327
  82. AMLODIPINE BESYLATE [Concomitant]
     Active Substance: AMLODIPINE BESYLATE
     Dosage: 10 MG, QD
     Route: 048
     Dates: start: 20130328, end: 20130328
  83. AMLODIPINE BESYLATE [Concomitant]
     Active Substance: AMLODIPINE BESYLATE
     Dosage: 5 MG, QD
     Route: 048
     Dates: start: 20130329, end: 20130401
  84. VOLTAREN [Concomitant]
     Active Substance: DICLOFENAC SODIUM
     Indication: Product used for unknown indication
     Dosage: 25 MG, TID
     Route: 048
     Dates: start: 20130125, end: 20130129
  85. VOLTAREN [Concomitant]
     Active Substance: DICLOFENAC SODIUM
     Dosage: 25 MG, TID
     Route: 048
     Dates: start: 20130205, end: 20130212
  86. REBAMIPIDE [Concomitant]
     Active Substance: REBAMIPIDE
     Indication: Product used for unknown indication
     Dosage: 100 MG, TID
     Route: 048
     Dates: start: 20130125, end: 20130129
  87. REBAMIPIDE [Concomitant]
     Active Substance: REBAMIPIDE
     Dosage: 100 MG, TID
     Route: 048
     Dates: start: 20130205, end: 20130212
  88. LANSOPRAZOLE [Concomitant]
     Active Substance: LANSOPRAZOLE
     Indication: Product used for unknown indication
     Dosage: 15 MG, QD
     Route: 048
     Dates: start: 20130125, end: 20130129
  89. LANSOPRAZOLE [Concomitant]
     Active Substance: LANSOPRAZOLE
     Dosage: 15 MG, QD
     Route: 048
     Dates: start: 20130205, end: 20130212
  90. Oxinorm [Concomitant]
     Indication: Product used for unknown indication
     Dosage: 1 DF,
     Route: 048
     Dates: start: 20130125, end: 20130129
  91. Oxinorm [Concomitant]
     Dosage: 10 DF,
     Route: 048
     Dates: start: 20130319, end: 20130319
  92. Oxinorm [Concomitant]
     Dosage: 5 DF,
     Route: 048
     Dates: start: 20130320, end: 20130320
  93. Oxinorm [Concomitant]
     Dosage: 10 DF,
     Route: 048
     Dates: start: 20130322, end: 20130322
  94. Oxinorm [Concomitant]
     Dosage: 10 DF,
     Route: 048
     Dates: start: 20130401, end: 20130401
  95. Oxinorm [Concomitant]
     Dosage: 10 DF,
     Route: 048
     Dates: start: 20130404, end: 20130404
  96. HARNAL [Concomitant]
     Active Substance: TAMSULOSIN HYDROCHLORIDE
     Indication: Product used for unknown indication
     Dosage: 0.2 MG, QD
     Route: 048
     Dates: start: 20130125, end: 20130129
  97. HARNAL [Concomitant]
     Active Substance: TAMSULOSIN HYDROCHLORIDE
     Dosage: 0.2 MG, QD
     Route: 048
     Dates: start: 20130205, end: 20130215
  98. Myonal [Concomitant]
     Indication: Product used for unknown indication
     Dosage: 50 MG, TID
     Route: 048
     Dates: start: 20130125, end: 20130129
  99. Myonal [Concomitant]
     Dosage: 50 MG, TID
     Route: 048
     Dates: start: 20130205, end: 20130212
  100. KYTRIL [Concomitant]
     Active Substance: GRANISETRON HYDROCHLORIDE
     Indication: Product used for unknown indication
     Dosage: 1 MG, QD
     Route: 048
     Dates: start: 20130205, end: 20130223
  101. NEUROTROPIN [Concomitant]
     Active Substance: NEUROTROPIN
     Indication: Product used for unknown indication
     Dosage: 8 IU, BID
     Route: 048
     Dates: start: 20130205, end: 20130218
  102. ACETAMINOPHEN [Concomitant]
     Active Substance: ACETAMINOPHEN
     Indication: Product used for unknown indication
     Dosage: 0.6 G, QID
     Route: 048
     Dates: start: 20130206, end: 20130223
  103. Novamin [Concomitant]
     Indication: Product used for unknown indication
     Dosage: 5 MG, TID
     Route: 048
     Dates: start: 20130208, end: 20130211
  104. Novamin [Concomitant]
     Dosage: 5 MG, TID
     Route: 048
     Dates: start: 20130218, end: 20130223
  105. Novamin [Concomitant]
     Dosage: 5 MG, TID
     Route: 048
     Dates: start: 20130226, end: 20130301
  106. TAMIFLU [Concomitant]
     Active Substance: OSELTAMIVIR PHOSPHATE
     Indication: Product used for unknown indication
     Dosage: 75 MG, QD
     Route: 048
     Dates: start: 20130212, end: 20130218
  107. LEVOFLOXACIN [Concomitant]
     Active Substance: LEVOFLOXACIN
     Indication: Product used for unknown indication
     Dosage: 500 MG, QD
     Route: 048
     Dates: start: 20130215, end: 20130223
  108. LEVOFLOXACIN [Concomitant]
     Active Substance: LEVOFLOXACIN
     Dosage: 500 MG, QD
     Route: 048
     Dates: start: 20130226, end: 20130301
  109. MINOCYCLINE HYDROCHLORIDE [Concomitant]
     Active Substance: MINOCYCLINE HYDROCHLORIDE
     Indication: Product used for unknown indication
     Dosage: 100 MG, BID
     Route: 048
     Dates: start: 20130215, end: 20130223
  110. MINOCYCLINE HYDROCHLORIDE [Concomitant]
     Active Substance: MINOCYCLINE HYDROCHLORIDE
     Dosage: 100 MG, BID
     Route: 048
     Dates: start: 20130226, end: 20130301
  111. CYANOCOBALAMIN\PYRIDOXINE HYDROCHLORIDE\THIAMINE [Concomitant]
     Active Substance: CYANOCOBALAMIN\PYRIDOXINE HYDROCHLORIDE\THIAMINE
     Indication: Product used for unknown indication
     Dosage: 1 DF,
     Route: 042
     Dates: start: 20130205, end: 20130209
  112. CYANOCOBALAMIN\PYRIDOXINE HYDROCHLORIDE\THIAMINE [Concomitant]
     Active Substance: CYANOCOBALAMIN\PYRIDOXINE HYDROCHLORIDE\THIAMINE
     Dosage: 1 DF,
     Route: 042
     Dates: start: 20130211, end: 20130212
  113. ROCEPHIN [Concomitant]
     Active Substance: CEFTRIAXONE SODIUM
     Indication: Product used for unknown indication
     Dosage: 1 G,
     Route: 042
     Dates: start: 20130206, end: 20130215
  114. TARGOCID [Concomitant]
     Active Substance: TEICOPLANIN
     Indication: Product used for unknown indication
     Dosage: 600 MG,
     Route: 041
     Dates: start: 20130208, end: 20130209
  115. TARGOCID [Concomitant]
     Active Substance: TEICOPLANIN
     Dosage: 200 MG,
     Route: 041
     Dates: start: 20130210, end: 20130215
  116. ISODINE [Concomitant]
     Active Substance: POVIDONE-IODINE
     Indication: Product used for unknown indication
     Dosage: 30 ML, TID
     Route: 002
     Dates: start: 20130304, end: 20130304
  117. FUNGIZONE [Concomitant]
     Active Substance: AMPHOTERICIN B
     Indication: Product used for unknown indication
     Dosage: 20 ML, TID
     Route: 048
     Dates: start: 20130311, end: 20130317
  118. ITRACONAZOLE [Concomitant]
     Active Substance: ITRACONAZOLE
     Indication: Product used for unknown indication
     Dosage: 200 MG, QD
     Route: 048
     Dates: start: 20130318, end: 20130324
  119. U-PASTA [Concomitant]
     Indication: Product used for unknown indication
     Dosage: 50 G, BID
     Route: 050
     Dates: start: 20130321, end: 20130321
  120. U-PASTA [Concomitant]
     Dosage: 50 G, BID
     Route: 050
     Dates: start: 20130329, end: 20130329
  121. U-PASTA [Concomitant]
     Dosage: 50 G, BID
     Route: 050
     Dates: start: 20130401, end: 20130401
  122. U-PASTA [Concomitant]
     Dosage: 50 G, BID
     Route: 050
     Dates: start: 20130404, end: 20130404
  123. Azunol [Concomitant]
     Indication: Product used for unknown indication
     Dosage: 30 G, BID
     Route: 050
     Dates: start: 20130322, end: 20130322
  124. SODIUM GUALENATE MONOHYDRATE [Concomitant]
     Active Substance: SODIUM GUALENATE MONOHYDRATE
     Indication: Product used for unknown indication
     Dosage: 6.66 ML, TID
     Route: 002
     Dates: start: 20130325, end: 20130325
  125. SODIUM GUALENATE MONOHYDRATE [Concomitant]
     Active Substance: SODIUM GUALENATE MONOHYDRATE
     Dosage: 6.66 ML, TID
     Route: 002
     Dates: start: 20130328, end: 20130328
  126. SODIUM GUALENATE MONOHYDRATE [Concomitant]
     Active Substance: SODIUM GUALENATE MONOHYDRATE
     Dosage: 6.66 ML, TID
     Route: 002
     Dates: start: 20130401, end: 20130401
  127. SODIUM GUALENATE MONOHYDRATE [Concomitant]
     Active Substance: SODIUM GUALENATE MONOHYDRATE
     Dosage: 6.66 ML, TID
     Route: 002
     Dates: start: 20130404, end: 20130404
  128. LENOGRASTIM [Concomitant]
     Active Substance: LENOGRASTIM
     Indication: Product used for unknown indication
     Dosage: 250 UG,
     Route: 058
     Dates: start: 20130318, end: 20130318
  129. GLYCERIN [Concomitant]
     Active Substance: GLYCERIN
     Indication: Product used for unknown indication
     Dosage: 1 DF, 5QD
     Route: 054
     Dates: start: 20130329, end: 20130329
  130. GLYCERIN [Concomitant]
     Active Substance: GLYCERIN
     Dosage: 1 DF, 5QD
     Route: 054
     Dates: start: 20130401, end: 20130401
  131. GLYCERIN [Concomitant]
     Active Substance: GLYCERIN
     Dosage: 1 DF, 5QD
     Route: 054
     Dates: start: 20130404, end: 20130404
  132. Solita-T NO.3 [Concomitant]
     Indication: Product used for unknown indication
     Dosage: 1000 ML,
     Route: 041
     Dates: start: 20130407, end: 20130407
  133. MORPHINE HYDROCHLORIDE [Concomitant]
     Active Substance: MORPHINE HYDROCHLORIDE
     Indication: Product used for unknown indication
     Dosage: 50 MG,
     Route: 051
     Dates: start: 20130407, end: 20130407
  134. Solita-T NO.1 [Concomitant]
     Indication: Product used for unknown indication
     Dosage: 500 ML,
     Route: 041
     Dates: start: 20130407, end: 20130407

REACTIONS (14)
  - Malignant pleural effusion [Fatal]
  - Liposarcoma [Fatal]
  - Platelet count decreased [Recovered/Resolved]
  - Myelosuppression [Not Recovered/Not Resolved]
  - Pyelonephritis [Recovering/Resolving]
  - Pyrexia [Recovering/Resolving]
  - Pneumothorax [Recovered/Resolved]
  - Hypothyroidism [Recovering/Resolving]
  - Hypoaesthesia oral [Not Recovered/Not Resolved]
  - Malaise [Recovered/Resolved]
  - Hypertension [Recovered/Resolved]
  - Nausea [Recovering/Resolving]
  - Dysgeusia [Not Recovered/Not Resolved]
  - Hair colour changes [Not Recovered/Not Resolved]

NARRATIVE: CASE EVENT DATE: 20130125
